FAERS Safety Report 9166330 (Version 1)
Quarter: 2013Q1

REPORT INFORMATION
  Report Type: Spontaneous
  Country: CA (occurrence: CA)
  Receive Date: 20130315
  Receipt Date: 20130315
  Transmission Date: 20140127
  Serious: Yes (Other)
  Sender: FDA-Public Use
  Company Number: CA-PFIZER INC-HQWYE741802DEC04

PATIENT
  Age: 5 Year
  Sex: Female
  Weight: 18.3 kg

DRUGS (7)
  1. RAPAMUNE [Suspect]
     Indication: CHRONIC ALLOGRAFT NEPHROPATHY
     Dosage: 1.5 MG, 2X/DAY
     Route: 048
     Dates: start: 20040101
  2. AMLODIPINE BESILATE [Suspect]
     Indication: HYPERTENSION
     Dosage: 5 MG, 1X/DAY
     Route: 065
  3. TACROLIMUS [Suspect]
     Indication: PROPHYLAXIS AGAINST TRANSPLANT REJECTION
     Dosage: 0.4 MG Q AM, 0.5 MG Q HS
     Route: 065
     Dates: start: 200311
  4. METOPROLOL [Concomitant]
     Route: 065
  5. CELLCEPT [Concomitant]
     Dosage: UNK
     Route: 065
     Dates: start: 200311
  6. PREDNISONE [Concomitant]
     Dosage: UNK
     Route: 065
     Dates: start: 200311
  7. COUMADIN [Concomitant]
     Dosage: UNK
     Route: 065
     Dates: start: 200311

REACTIONS (1)
  - Blood alkaline phosphatase increased [Not Recovered/Not Resolved]
